FAERS Safety Report 7224134-1 (Version None)
Quarter: 2011Q1

REPORT INFORMATION
  Report Type: 
  Country: None (occurrence: None)
  Receive Date: 20110113
  Receipt Date: 20110106
  Transmission Date: 20110831
  Serious: No
  Sender: FDA-Public Use
  Company Number: US-BIOGENIDEC-2011BI000758

PATIENT
  Age: 40 Year
  Sex: Female

DRUGS (1)
  1. AVONEX [Suspect]
     Indication: MULTIPLE SCLEROSIS
     Route: 030
     Dates: start: 20101025

REACTIONS (7)
  - DEHYDRATION [None]
  - NAUSEA [None]
  - CHILLS [None]
  - SINUSITIS [None]
  - PYREXIA [None]
  - HYPERHIDROSIS [None]
  - LARYNGITIS [None]
